FAERS Safety Report 9337883 (Version 3)
Quarter: 2013Q3

REPORT INFORMATION
  Report Type: Spontaneous
  Country: US (occurrence: US)
  Receive Date: 20130608
  Receipt Date: 20130726
  Transmission Date: 20140515
  Serious: Yes (Other)
  Sender: FDA-Public Use
  Company Number: US-PFIZER INC-2013173266

PATIENT
  Sex: Female

DRUGS (1)
  1. ADVIL [Suspect]
     Indication: PAIN
     Dosage: 200MG, EVERY SIX HOURS AS NEEDED
     Route: 048
     Dates: start: 201305, end: 20130606

REACTIONS (3)
  - Poor quality drug administered [Unknown]
  - Diarrhoea haemorrhagic [Unknown]
  - Product quality issue [Unknown]
